FAERS Safety Report 6922009-6 (Version None)
Quarter: 2010Q3

REPORT INFORMATION
  Report Type: 
  Country: None (occurrence: None)
  Receive Date: 20100806
  Receipt Date: 20090626
  Transmission Date: 20110219
  Serious: No
  Sender: FDA-Public Use
  Company Number: 2009-00294

PATIENT
  Age: 53 Year
  Sex: Female
  Weight: 68.4932 kg

DRUGS (7)
  1. ZICAM COLD REMEDY GEL SWABS [Suspect]
     Dates: start: 20070101, end: 20070101
  2. METOPROLOL TARTRATE [Concomitant]
  3. ENALAPRIL [Concomitant]
  4. METFORMIN [Concomitant]
  5. HYDROCHLOROTHIAZIDE [Concomitant]
  6. CITALOPRAM HYDROBROMIDE [Concomitant]
  7. ASPIRIN [Concomitant]

REACTIONS (2)
  - AGEUSIA [None]
  - ANOSMIA [None]
